FAERS Safety Report 4634626-7 (Version None)
Quarter: 2005Q2

REPORT INFORMATION
  Report Type: 
  Country: None (occurrence: None)
  Receive Date: 20050411
  Receipt Date: 20050324
  Transmission Date: 20051028
  Serious: Yes (Hospitalization)
  Sender: FDA-Public Use
  Company Number: 8007143

PATIENT
  Age: 84 Year
  Sex: Female
  Weight: 32 kg

DRUGS (2)
  1. THEOPHYLLINE [Suspect]
     Indication: ASTHMA
     Dosage: 300 MG
  2. AMINOPHYLLINE [Suspect]
     Indication: ASTHMA
     Dosage: 250 MG ONCE  IVI
     Route: 042
     Dates: start: 20030126, end: 20030126

REACTIONS (22)
  - ASTHMA [None]
  - BLOOD PRESSURE DECREASED [None]
  - CARDIAC FAILURE [None]
  - CARDIOMEGALY [None]
  - CONVULSION [None]
  - DEPRESSED LEVEL OF CONSCIOUSNESS [None]
  - DRUG TOXICITY [None]
  - DRY MOUTH [None]
  - HAEMODIALYSIS [None]
  - HYPERHIDROSIS [None]
  - HYPOXIA [None]
  - METABOLIC ACIDOSIS [None]
  - MYOGLOBINURIA [None]
  - NAUSEA [None]
  - PULMONARY CONGESTION [None]
  - RENAL FAILURE ACUTE [None]
  - RENAL IMPAIRMENT [None]
  - RESPIRATORY FAILURE [None]
  - RHABDOMYOLYSIS [None]
  - SINUS TACHYCARDIA [None]
  - TACHYCARDIA [None]
  - TREMOR [None]
